FAERS Safety Report 9888543 (Version 1)
Quarter: 2014Q1

REPORT INFORMATION
  Report Type: Spontaneous
  Country: JP (occurrence: JP)
  Receive Date: 20140211
  Receipt Date: 20140211
  Transmission Date: 20141002
  Serious: Yes (Death)
  Sender: FDA-Public Use
  Company Number: PHHY2014JP016426

PATIENT
  Age: 53 Year
  Sex: Male

DRUGS (1)
  1. SANDIMMUN [Suspect]
     Indication: BONE MARROW TRANSPLANT
     Dosage: 3 MG/KG, DU
     Dates: start: 20070403

REACTIONS (2)
  - Gastrointestinal haemorrhage [Fatal]
  - Graft versus host disease [Fatal]
